FAERS Safety Report 6468219-6 (Version None)
Quarter: 2009Q4

REPORT INFORMATION
  Report Type: 
  Country: None (occurrence: None)
  Receive Date: 20091130
  Receipt Date: 20091118
  Transmission Date: 20100525
  Serious: Yes (Hospitalization, Other)
  Sender: FDA-Public Use
  Company Number: 2009SP037390

PATIENT
  Age: 95 Year
  Sex: Male

DRUGS (1)
  1. MIRALAX [Suspect]
     Indication: DRUG USE FOR UNKNOWN INDICATION
     Dosage: 8.5 GM; QD; PO, 17 GM; QD; PO
     Route: 048

REACTIONS (2)
  - DIARRHOEA [None]
  - INFREQUENT BOWEL MOVEMENTS [None]
